FAERS Safety Report 4685876-5 (Version None)
Quarter: 2005Q2

REPORT INFORMATION
  Report Type: 
  Country: None (occurrence: None)
  Receive Date: 20050609
  Receipt Date: 20050527
  Transmission Date: 20051028
  Serious: Yes (Hospitalization)
  Sender: FDA-Public Use
  Company Number: DE-SOLVAY-00205001865

PATIENT
  Age: 23962 Day
  Sex: Female
  Weight: 70 kg

DRUGS (4)
  1. BELOC ZOK [Concomitant]
     Indication: ILL-DEFINED DISORDER
     Dosage: DAILY DOSE:  UNKNOWN
     Route: 065
     Dates: start: 20030701
  2. COVERSUM [Suspect]
     Indication: HYPERTENSION
     Dosage: DAILY DOSE: 2 MILLIGRAM(S)
     Route: 048
     Dates: start: 20030701, end: 20050422
  3. ACETYLCYSTEINE [Concomitant]
     Indication: ILL-DEFINED DISORDER
     Dosage: DAILY DOSE:  UNKNOWN
     Route: 065
  4. NEO-ANGIN HALSTABLETTEN [Concomitant]
     Indication: ILL-DEFINED DISORDER
     Dosage: DAILY DOSE:  UNKNOWN
     Route: 065

REACTIONS (15)
  - BLOOD CREATININE INCREASED [None]
  - BLOOD FIBRINOGEN INCREASED [None]
  - BLOOD UREA INCREASED [None]
  - C-REACTIVE PROTEIN INCREASED [None]
  - COUGH [None]
  - ERYTHEMA [None]
  - GAMMA-GLUTAMYLTRANSFERASE INCREASED [None]
  - HEART RATE INCREASED [None]
  - NASOPHARYNGITIS [None]
  - NEUTROPHIL COUNT INCREASED [None]
  - RASH PUSTULAR [None]
  - SECRETION DISCHARGE [None]
  - SWOLLEN TONGUE [None]
  - URTICARIA [None]
  - WHITE BLOOD CELL COUNT INCREASED [None]
